FAERS Safety Report 7319295-X (Version None)
Quarter: 2011Q1

REPORT INFORMATION
  Report Type: 
  Country: None (occurrence: None)
  Receive Date: 20110228
  Receipt Date: 20100119
  Transmission Date: 20110831
  Serious: No
  Sender: FDA-Public Use
  Company Number: A0840299A

PATIENT
  Age: 21 Year
  Sex: Male

DRUGS (1)
  1. LAMOTRIGINE [Suspect]
     Indication: MOOD SWINGS
     Route: 048
     Dates: start: 20091201, end: 20100101

REACTIONS (1)
  - DRUG INEFFECTIVE [None]
